FAERS Safety Report 16019095 (Version 1)
Quarter: 2019Q1

REPORT INFORMATION
  Report Type: Report from Study
  Country: US (occurrence: US)
  Receive Date: 20190228
  Receipt Date: 20190228
  Transmission Date: 20190418
  Serious: Yes (Other)
  Sender: FDA-Public Use
  Company Number: US-JAZZ-2019-US-002090

PATIENT
  Age: 18 Year
  Sex: Female

DRUGS (5)
  1. XYREM [Suspect]
     Active Substance: SODIUM OXYBATE
     Indication: NARCOLEPSY
     Dosage: 2 G, BID
     Route: 048
     Dates: start: 20190208, end: 201902
  2. XYREM [Suspect]
     Active Substance: SODIUM OXYBATE
     Dosage: UNKNOWN LOWERED DOSE
     Route: 048
     Dates: start: 201902
  3. MODAFINIL. [Concomitant]
     Active Substance: MODAFINIL
     Indication: PRODUCT USED FOR UNKNOWN INDICATION
     Dosage: UNK
     Dates: end: 201902
  4. REXULTI [Concomitant]
     Active Substance: BREXPIPRAZOLE
     Indication: PRODUCT USED FOR UNKNOWN INDICATION
  5. VENLAFAXINE HCL [Concomitant]
     Active Substance: VENLAFAXINE HYDROCHLORIDE
     Indication: PRODUCT USED FOR UNKNOWN INDICATION

REACTIONS (12)
  - Depression [Unknown]
  - Product preparation error [Unknown]
  - Vomiting [Unknown]
  - Intentional self-injury [Unknown]
  - Gait disturbance [Unknown]
  - Suicidal ideation [Unknown]
  - Retching [Unknown]
  - Restlessness [Unknown]
  - Anxiety [Unknown]
  - Dyskinesia [Unknown]
  - Tinnitus [Unknown]
  - Nausea [Unknown]

NARRATIVE: CASE EVENT DATE: 201902
